FAERS Safety Report 20461113 (Version 2)
Quarter: 2022Q1

REPORT INFORMATION
  Report Type: Report from Study
  Country: US (occurrence: US)
  Receive Date: 20220211
  Receipt Date: 20220214
  Transmission Date: 20220423
  Serious: No
  Sender: FDA-Public Use
  Company Number: US-HRARD-202000820

PATIENT
  Sex: Male

DRUGS (5)
  1. LYSODREN [Suspect]
     Active Substance: MITOTANE
     Route: 048
     Dates: start: 20211010
  2. LYSODREN [Suspect]
     Active Substance: MITOTANE
     Dosage: 3000 MG IN THE MORNING AND 2500 MG IN THE AFTERNOON, ONGOING
     Route: 048
  3. LYSODREN [Suspect]
     Active Substance: MITOTANE
     Dosage: 5 TABS (I.E. 2500 MG) IN THE MORNING AND 4 TABS (I.E. 2000 MG) IN THE EVENING
     Route: 048
     Dates: start: 2021
  4. Levothyrocxine [Concomitant]
     Dosage: 50 MICROGRAM
  5. A-HYDROCORT [Concomitant]
     Active Substance: HYDROCORTISONE SODIUM SUCCINATE
     Dosage: 5 MG

REACTIONS (3)
  - Balance disorder [Recovered/Resolved]
  - Low density lipoprotein increased [Unknown]
  - Thyroid hormones decreased [Unknown]

NARRATIVE: CASE EVENT DATE: 20210101
